FAERS Safety Report 6911147-X (Version None)
Quarter: 2010Q3

REPORT INFORMATION
  Report Type: 
  Country: None (occurrence: None)
  Receive Date: 20100806
  Receipt Date: 20100803
  Transmission Date: 20110219
  Serious: Yes (Other)
  Sender: FDA-Public Use
  Company Number: CA-MERCK-1008USA00442

PATIENT

DRUGS (3)
  1. FOSAMAX [Suspect]
     Indication: OSTEOPOROSIS
     Route: 048
     Dates: start: 20100601
  2. LAMOTRIGINE [Concomitant]
     Indication: CONVULSION
     Route: 065
  3. ETHOSUXIMIDE [Concomitant]
     Indication: CONVULSION
     Route: 065

REACTIONS (1)
  - PETIT MAL EPILEPSY [None]
